FAERS Safety Report 12345150 (Version 1)
Quarter: 2016Q2

REPORT INFORMATION
  Report Type: Spontaneous
  Country: US (occurrence: US)
  Receive Date: 20160507
  Receipt Date: 20160507
  Transmission Date: 20160815
  Serious: No
  Sender: FDA-Public Use
  Company Number: US-TEVA-657732USA

PATIENT
  Age: 44 Year
  Sex: Male

DRUGS (6)
  1. VITAMIN D2 [Concomitant]
     Active Substance: ERGOCALCIFEROL
  2. GABAPENTIN. [Concomitant]
     Active Substance: GABAPENTIN
  3. COPAXONE [Suspect]
     Active Substance: GLATIRAMER ACETATE
     Indication: MULTIPLE SCLEROSIS
     Route: 058
     Dates: start: 20150530
  4. XARELTO [Concomitant]
     Active Substance: RIVAROXABAN
  5. OXYBUTYNIN [Concomitant]
     Active Substance: OXYBUTYNIN
  6. BACLOFEN. [Concomitant]
     Active Substance: BACLOFEN

REACTIONS (2)
  - Saliva altered [Unknown]
  - Vomiting [Unknown]

NARRATIVE: CASE EVENT DATE: 201604
